FAERS Safety Report 8510877-6 (Version None)
Quarter: 2012Q3

REPORT INFORMATION
  Report Type: 
  Country: None (occurrence: None)
  Receive Date: 20120703
  Receipt Date: 20120620
  Transmission Date: 20120928
  Serious: Yes (Hospitalization, Other)
  Sender: FDA-Public Use
  Company Number: 2012-2528

PATIENT
  Age: 30 Year
  Sex: Female
  Weight: 60 kg

DRUGS (1)
  1. BOTULINUM TOXIN TYPE A [Suspect]
     Indication: SKIN WRINKLING
     Dosage: 40 UNITS (40 UNITS, SINGLE CYCLE) INTRAMUSCULAR
     Route: 030
     Dates: start: 20120604, end: 20120604

REACTIONS (5)
  - CHILLS [None]
  - FLUSHING [None]
  - PYREXIA [None]
  - SWELLING FACE [None]
  - HYPERSENSITIVITY [None]
